FAERS Safety Report 4756689-0 (Version None)
Quarter: 2005Q3

REPORT INFORMATION
  Report Type: 
  Country: None (occurrence: None)
  Receive Date: 20050830
  Receipt Date: 20050414
  Transmission Date: 20060218
  Serious: Yes (Disabling, Other)
  Sender: FDA-Public Use
  Company Number: US-MERCK-0504USA02823

PATIENT
  Age: 56 Year
  Sex: Male
  Weight: 98 kg

DRUGS (9)
  1. VIOXX [Suspect]
     Indication: ARTHRITIS
     Route: 048
     Dates: start: 20010402, end: 20040901
  2. TYLENOL [Concomitant]
     Route: 065
     Dates: start: 19800101
  3. FLONASE [Concomitant]
     Route: 065
  4. PRILOSEC [Concomitant]
     Route: 065
  5. METOCLOPRAMIDE [Concomitant]
     Route: 065
  6. HYDROCORTISONE [Concomitant]
     Route: 065
  7. BIAXIN XL [Concomitant]
     Route: 065
  8. TRIMOX [Concomitant]
     Route: 065
  9. AMBIEN [Concomitant]
     Route: 065

REACTIONS (5)
  - CEREBROVASCULAR ACCIDENT [None]
  - HYPERTENSION [None]
  - NERVE COMPRESSION [None]
  - PANIC DISORDER [None]
  - SPINAL DISORDER [None]
